FAERS Safety Report 6904979-5 (Version None)
Quarter: 2010Q3

REPORT INFORMATION
  Report Type: 
  Country: None (occurrence: None)
  Receive Date: 20100804
  Receipt Date: 20090819
  Transmission Date: 20110219
  Serious: No
  Sender: FDA-Public Use
  Company Number: US-PFIZER INC-2009237625

PATIENT

DRUGS (1)
  1. LYRICA [Suspect]
     Dosage: 75 MG, 2X/DAY

REACTIONS (1)
  - URTICARIA [None]
